FAERS Safety Report 4602839-6 (Version None)
Quarter: 2005Q1

REPORT INFORMATION
  Report Type: 
  Country: None (occurrence: None)
  Receive Date: 20050307
  Receipt Date: 20050222
  Transmission Date: 20050727
  Serious: Yes (Hospitalization)
  Sender: FDA-Public Use
  Company Number: 02100-JPN-05-0057

PATIENT
  Age: 74 Year
  Sex: Female

DRUGS (9)
  1. CILOSTAZOL [Suspect]
     Indication: LACUNAR INFARCTION
     Dosage: 200 MG ORAL
     Route: 048
     Dates: start: 20031118, end: 20040903
  2. FELBINAC [Concomitant]
  3. T-DERMAL [Concomitant]
  4. MELOXICAM [Concomitant]
  5. MAGNESIUM OXIDE [Concomitant]
  6. YEAST DRIED [Concomitant]
  7. CARMELLOSE SODIUM [Concomitant]
  8. AZULENE SULFONATE SODIUM/L-GLUTAMINE [Concomitant]
  9. INDOMETHACIN [Concomitant]

REACTIONS (17)
  - ABDOMINAL PAIN LOWER [None]
  - ALANINE AMINOTRANSFERASE ABNORMAL [None]
  - ANOREXIA [None]
  - BACK INJURY [None]
  - BLOOD LACTATE DEHYDROGENASE ABNORMAL [None]
  - BLOOD UREA INCREASED [None]
  - BLOOD URINE PRESENT [None]
  - DISEASE RECURRENCE [None]
  - FALL [None]
  - GASTRIC CANCER [None]
  - HYDRONEPHROSIS [None]
  - LACUNAR INFARCTION [None]
  - LYMPHOCYTE COUNT INCREASED [None]
  - METASTASES TO KIDNEY [None]
  - NEUTROPHIL COUNT DECREASED [None]
  - TERMINAL STATE [None]
  - WEIGHT DECREASED [None]
